FAERS Safety Report 6649595-8 (Version None)
Quarter: 2010Q1

REPORT INFORMATION
  Report Type: 
  Country: None (occurrence: None)
  Receive Date: 20100324
  Receipt Date: 20100324
  Transmission Date: 20100710
  Serious: Yes (Other)
  Sender: FDA-Public Use
  Company Number: None

PATIENT
  Age: 58 Year
  Sex: Female
  Weight: 45.8133 kg

DRUGS (1)
  1. RISEDRONATE SODIUM [Suspect]
     Indication: OSTEOPENIA
     Dosage: 1 TABLE ONE MONTH PO
     Route: 048
     Dates: start: 20100320, end: 20100320

REACTIONS (8)
  - BONE PAIN [None]
  - DECREASED APPETITE [None]
  - DIZZINESS EXERTIONAL [None]
  - INFLUENZA LIKE ILLNESS [None]
  - MOVEMENT DISORDER [None]
  - MUSCLE SPASMS [None]
  - NAUSEA [None]
  - PAINFUL RESPIRATION [None]
